FAERS Safety Report 25846756 (Version 2)
Quarter: 2025Q3

REPORT INFORMATION
  Report Type: Spontaneous
  Country: CA (occurrence: CA)
  Receive Date: 20250925
  Receipt Date: 20250930
  Transmission Date: 20251021
  Serious: Yes (Hospitalization)
  Sender: PFIZER
  Company Number: CA-PFIZER INC-202500188163

PATIENT
  Age: 20 Year
  Sex: Male

DRUGS (2)
  1. VELSIPITY [Suspect]
     Active Substance: ETRASIMOD ARGININE
     Indication: Colitis ulcerative
     Dosage: 2 MG, 1X/DAY
     Route: 048
     Dates: start: 20250306
  2. PANTOPRAZOLE [Concomitant]
     Active Substance: PANTOPRAZOLE

REACTIONS (1)
  - Condition aggravated [Not Recovered/Not Resolved]
